FAERS Safety Report 26094910 (Version 1)
Quarter: 2025Q4

REPORT INFORMATION
  Report Type: Spontaneous
  Country: CN (occurrence: CN)
  Receive Date: 20251126
  Receipt Date: 20251126
  Transmission Date: 20260117
  Serious: Yes (Other)
  Sender: AZURITY PHARMACEUTICALS
  Company Number: CN-AZURITY PHARMACEUTICALS, INC.-AZR202511-003474

PATIENT
  Age: 68 Year
  Sex: Male

DRUGS (1)
  1. METHYLPREDNISOLONE ACETATE [Suspect]
     Active Substance: METHYLPREDNISOLONE ACETATE
     Indication: Nephrotic syndrome
     Dosage: 32 MILLIGRAM, DAILY (FOR 8 MONTHS) (CUMULATIVE DOSE 12.6G)
     Route: 065
     Dates: start: 2023

REACTIONS (4)
  - Multiple organ dysfunction syndrome [Recovered/Resolved]
  - Rhabdomyolysis [Recovered/Resolved]
  - Septic shock [Recovered/Resolved]
  - Disseminated strongyloidiasis [Recovered/Resolved]

NARRATIVE: CASE EVENT DATE: 20240201
